FAERS Safety Report 16322505 (Version 1)
Quarter: 2019Q2

REPORT INFORMATION
  Report Type: Spontaneous
  Country: US (occurrence: US)
  Receive Date: 20190516
  Receipt Date: 20190516
  Transmission Date: 20190711
  Serious: No
  Sender: FDA-Public Use
  Company Number: US-ALNYLAM PHARMACEUTICALS, INC.-ALN-2019-000282

PATIENT
  Sex: Male

DRUGS (2)
  1. DIPHENHYDRAMINE. [Suspect]
     Active Substance: DIPHENHYDRAMINE
     Indication: PROPHYLAXIS
  2. ONPATTRO [Suspect]
     Active Substance: PATISIRAN SODIUM
     Indication: HEREDITARY NEUROPATHIC AMYLOIDOSIS
     Dosage: UNK, Q3W
     Route: 042
     Dates: start: 20181030

REACTIONS (7)
  - Malaise [Unknown]
  - Feeling abnormal [Unknown]
  - Infusion site erythema [Recovered/Resolved]
  - Nervousness [Unknown]
  - Somnolence [Unknown]
  - Infusion site bruising [Recovered/Resolved]
  - Abdominal pain upper [Unknown]
